FAERS Safety Report 6509463-9 (Version None)
Quarter: 2009Q4

REPORT INFORMATION
  Report Type: 
  Country: None (occurrence: None)
  Receive Date: 20091217
  Receipt Date: 20091202
  Transmission Date: 20100525
  Serious: Yes (Congenital Anomaly, Other)
  Sender: FDA-Public Use
  Company Number: 003002

PATIENT
  Sex: Female

DRUGS (4)
  1. LEVETIRACETAM [Suspect]
  2. LAMOTRIGINE [Suspect]
  3. FOLIC ACID [Concomitant]
  4. LABETALOL HCL [Concomitant]

REACTIONS (4)
  - CEREBRAL CYST [None]
  - CONGENITAL ANOMALY [None]
  - EXOMPHALOS [None]
  - MATERNAL DRUGS AFFECTING FOETUS [None]
